FAERS Safety Report 4515576-3 (Version None)
Quarter: 2004Q4

REPORT INFORMATION
  Report Type: 
  Country: None (occurrence: None)
  Receive Date: 20040929
  Receipt Date: 20040621
  Transmission Date: 20050328
  Serious: Yes (Death)
  Sender: FDA-Public Use
  Company Number: 2004-02897

PATIENT
  Age: 40 Year
  Sex: Male

DRUGS (1)
  1. INFED [Suspect]

REACTIONS (1)
  - ANAPHYLACTIC REACTION [None]
